FAERS Safety Report 13272501 (Version 4)
Quarter: 2017Q2

REPORT INFORMATION
  Report Type: Report from Study
  Country: DE (occurrence: DE)
  Receive Date: 20170227
  Receipt Date: 20170512
  Transmission Date: 20170830
  Serious: Yes (Hospitalization, Other)
  Sender: FDA-Public Use
  Company Number: PHHY2017DE029102

PATIENT
  Sex: Male

DRUGS (1)
  1. TASIGNA [Suspect]
     Active Substance: NILOTINIB
     Indication: CHRONIC MYELOID LEUKAEMIA
     Route: 065
     Dates: start: 201106, end: 2013

REACTIONS (13)
  - Chest pain [Unknown]
  - Pain [Unknown]
  - Hypertension [Unknown]
  - Coronary artery disease [Unknown]
  - Inflammation of wound [Unknown]
  - Hyperlipidaemia [Unknown]
  - Cardiac failure [Unknown]
  - Angina pectoris [Unknown]
  - Anal stenosis [Unknown]
  - Cardiac output decreased [Unknown]
  - Cardiac disorder [Unknown]
  - Burns second degree [Unknown]
  - Blood calcium increased [Unknown]

NARRATIVE: CASE EVENT DATE: 2012
